FAERS Safety Report 8169587-X (Version None)
Quarter: 2012Q1

REPORT INFORMATION
  Report Type: 
  Country: None (occurrence: None)
  Receive Date: 20120104
  Receipt Date: 20111129
  Transmission Date: 20120608
  Serious: No
  Sender: FDA-Public Use
  Company Number: 2011HGS-002875

PATIENT
  Age: 48 Year
  Sex: Female
  Weight: 86.637 kg

DRUGS (25)
  1. FOLGARD (HEPAGRISEVIT FORTE-N TABLET) (PYRIDOXINE HYDROCHLORIDE, FOLIC [Concomitant]
  2. AMBIEN [Concomitant]
  3. ZOFRAN [Concomitant]
  4. FIORICET (AXOTAL /OLD FORM/) (CAFFEINE, BUTALBITAL, PARACETAMOL) [Concomitant]
  5. DENTAL PASTE [Concomitant]
  6. OMEPRAZOLE [Concomitant]
  7. TOPAMAX [Concomitant]
  8. CALCIUM CARBONATE [Concomitant]
  9. LISINOPRIL [Concomitant]
  10. VITAMIN D [Concomitant]
  11. ICAPS (ICAPS) VITAMIN NOS, MINERAL NOS) [Concomitant]
  12. NORCO (VICODIN) (PARACETAMOL, HYDROCODONE BITARTRATE) [Concomitant]
  13. PREDNISONE TAB [Concomitant]
  14. MULTIVITAMIN (MULTIVITAMIN ^LAPPE^) (VITAMIN NOS) [Concomitant]
  15. MAGIC MOUTHWASH (STOMATOLOGICALS, MOUTH PREPARATION) (NULL) [Concomitant]
  16. ASCORBIC ACID [Concomitant]
  17. NYSTATIN CREAM (NYSTATIN) [Concomitant]
  18. CITALOPRAM HYDROBROMIDE [Concomitant]
  19. TINCTURE OF BENZOIN (BENZOIN TINCTURE) [Concomitant]
  20. BENLYSTA [Suspect]
     Indication: SYSTEMIC LUPUS ERYTHEMATOSUS
     Dosage: 1 IN 2 WK, INTRAVENOUS DRIP
     Route: 041
     Dates: start: 20111108
  21. PLAQUENIL [Concomitant]
  22. SUMATRIPTAN SUCCINATE (IMITREX) [Concomitant]
  23. SLOW FE (FERROUS SULFATE) [Concomitant]
  24. VOLTAREN [Concomitant]
  25. RANITIDINE HYDROCHLORIDE [Concomitant]

REACTIONS (7)
  - EYE PAIN [None]
  - OROPHARYNGEAL PAIN [None]
  - FATIGUE [None]
  - STOMATITIS [None]
  - OCULAR HYPERAEMIA [None]
  - DIARRHOEA [None]
  - PAIN IN EXTREMITY [None]
